FAERS Safety Report 6670783-9 (Version None)
Quarter: 2010Q2

REPORT INFORMATION
  Report Type: 
  Country: None (occurrence: None)
  Receive Date: 20100407
  Receipt Date: 20100407
  Transmission Date: 20101027
  Serious: Yes (Death, Hospitalization)
  Sender: FDA-Public Use
  Company Number: PHHO2007PL08125

PATIENT
  Sex: Female
  Weight: 50.6 kg

DRUGS (4)
  1. ACLASTA/ZOLEDRONATE T29581+A+SOLINJ [Suspect]
     Indication: OSTEOPOROSIS POSTMENOPAUSAL
     Dosage: 5 MG ONCE A YEAR
     Route: 048
     Dates: start: 20050919
  2. CALCIUM [Concomitant]
     Indication: OSTEOPOROSIS POSTMENOPAUSAL
     Dosage: 2 X 500 MG
     Dates: start: 20020904
  3. VITAMIN D [Concomitant]
     Indication: OSTEOPOROSIS POSTMENOPAUSAL
     Dosage: 800 IU
     Dates: start: 20020904
  4. ENARENAL [Concomitant]
     Indication: HYPERTENSION
     Dosage: 5 MG
     Dates: start: 19970101

REACTIONS (13)
  - ABDOMINAL ADHESIONS [None]
  - ABDOMINAL PAIN [None]
  - ANAEMIA [None]
  - ASTHENIA [None]
  - DECREASED APPETITE [None]
  - DIARRHOEA [None]
  - GASTROINTESTINAL DISORDER [None]
  - HYPOKALAEMIA [None]
  - HYPONATRAEMIA [None]
  - ILEAL PERFORATION [None]
  - INTESTINAL RESECTION [None]
  - MECHANICAL ILEUS [None]
  - NAUSEA [None]
